FAERS Safety Report 7766230-6 (Version None)
Quarter: 2011Q3

REPORT INFORMATION
  Report Type: 
  Country: None (occurrence: None)
  Receive Date: 20110921
  Receipt Date: 20110916
  Transmission Date: 20111222
  Serious: Yes (Other)
  Sender: FDA-Public Use
  Company Number: US-BAYER-2011-087638

PATIENT
  Sex: Female

DRUGS (1)
  1. BETAPACE [Suspect]

REACTIONS (2)
  - VENTRICULAR FIBRILLATION [None]
  - HEART RATE IRREGULAR [None]
